FAERS Safety Report 20053950 (Version 1)
Quarter: 2021Q4

REPORT INFORMATION
  Report Type: Spontaneous
  Country: US (occurrence: US)
  Receive Date: 20211110
  Receipt Date: 20211110
  Transmission Date: 20220303
  Serious: Yes (Death, Other)
  Sender: FDA-Public Use
  Company Number: US-CADILA HEALTHCARE LIMITED-US-ZYDUS-071206

PATIENT

DRUGS (1)
  1. OXYCODONE HYDROCHLORIDE [Suspect]
     Active Substance: OXYCODONE HYDROCHLORIDE
     Indication: Product used for unknown indication
     Dosage: UNK
     Route: 065

REACTIONS (8)
  - Metabolic acidosis [Unknown]
  - Leukocytosis [Unknown]
  - Toxicity to various agents [Fatal]
  - Hepatotoxicity [Unknown]
  - Hypotension [Unknown]
  - Arrhythmia [Unknown]
  - Respiratory depression [Unknown]
  - Depressed level of consciousness [Unknown]
